FAERS Safety Report 14918927 (Version 3)
Quarter: 2018Q2

REPORT INFORMATION
  Report Type: Spontaneous
  Country: CA (occurrence: CA)
  Receive Date: 20180521
  Receipt Date: 20180612
  Transmission Date: 20180711
  Serious: No
  Sender: FDA-Public Use
  Company Number: CA-CELLTRION INC.-2018CA019510

PATIENT

DRUGS (4)
  1. INFLECTRA [Suspect]
     Active Substance: INFLIXIMAB-DYYB
     Dosage: 340 MG, CYCLIC (EVERY0,2,6 WEEKS THEN EVERY 8WEEKS)
     Route: 042
     Dates: start: 20180403
  2. INFLECTRA [Suspect]
     Active Substance: INFLIXIMAB-DYYB
     Dosage: 340 MG, CYCLIC (EVERY0,2,6 WEEKS THEN EVERY 8WEEKS)
     Route: 042
     Dates: start: 20180510
  3. INFLECTRA [Suspect]
     Active Substance: INFLIXIMAB-DYYB
     Indication: COLITIS ULCERATIVE
     Dosage: 340 MG, CYCLIC (EVERY0,2,6 WEEKS THEN EVERY 8WEEKS)
     Route: 042
     Dates: start: 20180219
  4. INFLECTRA [Suspect]
     Active Substance: INFLIXIMAB-DYYB
     Dosage: 340 MG, CYCLIC (EVERY0,2,6 WEEKS THEN EVERY 8WEEKS)
     Route: 042
     Dates: start: 20180315

REACTIONS (3)
  - Fatigue [Unknown]
  - Drug effect incomplete [Not Recovered/Not Resolved]
  - Heart rate irregular [Unknown]

NARRATIVE: CASE EVENT DATE: 20180403
